FAERS Safety Report 5051298-0 (Version None)
Quarter: 2006Q3

REPORT INFORMATION
  Report Type: 
  Country: None (occurrence: None)
  Receive Date: 20060710
  Receipt Date: 20060703
  Transmission Date: 20061208
  Serious: Yes (Death)
  Sender: FDA-Public Use
  Company Number: 2006-144962-NL

PATIENT
  Age: 64 Year
  Sex: Male

DRUGS (11)
  1. DANAPAROID SODIUM [Suspect]
     Indication: DISSEMINATED INTRAVASCULAR COAGULATION
     Dosage: INTRAVENOUS (NOS)
     Route: 042
     Dates: start: 20051116, end: 20051128
  2. DOPAMINE HCL [Concomitant]
  3. MEROPENEM [Concomitant]
  4. FLUCONAZOLE [Concomitant]
  5. IMMUNE GLOBULIN INTRAVENOUS (HUMAN) [Concomitant]
  6. NEUPOGEN [Concomitant]
  7. METHYLPREDNISOLONE SODIUM SUCCINATE [Concomitant]
  8. TOBRAMYCIN [Concomitant]
  9. NAFAMOSTAT MESILATE [Concomitant]
  10. PREDNISOLONE [Concomitant]
  11. TEICOPLANIN [Concomitant]

REACTIONS (4)
  - DEPRESSED LEVEL OF CONSCIOUSNESS [None]
  - HAEMORRHAGIC DIATHESIS [None]
  - PANCYTOPENIA [None]
  - SUBARACHNOID HAEMORRHAGE [None]
